FAERS Safety Report 9825822 (Version 1)
Quarter: 2014Q1

REPORT INFORMATION
  Report Type: Spontaneous
  Country: US (occurrence: None)
  Receive Date: 20140116
  Receipt Date: 20140116
  Transmission Date: 20141002
  Serious: Yes (Other)
  Sender: FDA-Public Use
  Company Number: None

PATIENT
  Age: 59 Year
  Sex: Male

DRUGS (5)
  1. ZYTIGA 250MG [Suspect]
     Indication: PROSTATE CANCER
     Route: 048
     Dates: start: 20130222, end: 201401
  2. PREDNISONE [Concomitant]
  3. LUPRIN DEPOT [Concomitant]
  4. ZOMETA [Concomitant]
  5. PROVERGE [Concomitant]

REACTIONS (1)
  - Drug ineffective [None]
